FAERS Safety Report 11822315 (Version 6)
Quarter: 2017Q1

REPORT INFORMATION
  Report Type: Spontaneous
  Country: US (occurrence: US)
  Receive Date: 20151210
  Receipt Date: 20170316
  Transmission Date: 20170428
  Serious: Yes (Hospitalization)
  Sender: FDA-Public Use
  Company Number: US-JNJFOC-20150619236

PATIENT
  Age: 53 Year
  Sex: Male

DRUGS (6)
  1. ATIVAN [Concomitant]
     Active Substance: LORAZEPAM
     Route: 048
  2. IMBRUVICA [Suspect]
     Active Substance: IBRUTINIB
     Indication: CHRONIC LYMPHOCYTIC LEUKAEMIA
     Route: 048
     Dates: start: 20141202, end: 201702
  3. PROCHLORPERAZINE. [Concomitant]
     Active Substance: PROCHLORPERAZINE
     Route: 048
     Dates: start: 20120524
  4. LYRICA [Concomitant]
     Active Substance: PREGABALIN
  5. TRAMADOL HCL [Concomitant]
     Active Substance: TRAMADOL HYDROCHLORIDE
  6. ZOFRAN [Concomitant]
     Active Substance: ONDANSETRON HYDROCHLORIDE
     Dates: start: 20120524

REACTIONS (19)
  - Dermal cyst [Unknown]
  - Muscle spasms [Recovering/Resolving]
  - Nausea [Unknown]
  - Vision blurred [Unknown]
  - Diabetes mellitus [Unknown]
  - Gingival pain [Unknown]
  - Muscle disorder [Unknown]
  - Carpal tunnel syndrome [Unknown]
  - Hypotonia [Unknown]
  - Arthralgia [Unknown]
  - Diarrhoea [Unknown]
  - Blood count abnormal [Not Recovered/Not Resolved]
  - Dizziness [Recovering/Resolving]
  - Muscle atrophy [Unknown]
  - Lymphocyte count increased [Unknown]
  - Bronchitis [Unknown]
  - White blood cell count decreased [Recovering/Resolving]
  - Constipation [Unknown]
  - Neuropathy peripheral [Unknown]

NARRATIVE: CASE EVENT DATE: 201702
